FAERS Safety Report 18875098 (Version 1)
Quarter: 2021Q1

REPORT INFORMATION
  Report Type: Spontaneous
  Country: FI (occurrence: FI)
  Receive Date: 20210211
  Receipt Date: 20210211
  Transmission Date: 20210420
  Serious: Yes (Disabling)
  Sender: FDA-Public Use
  Company Number: FI-SUN PHARMACEUTICAL INDUSTRIES LTD-2021RR-280296

PATIENT
  Age: 64 Year
  Sex: Male

DRUGS (4)
  1. METFORMIN [Concomitant]
     Active Substance: METFORMIN HYDROCHLORIDE
     Indication: DIABETES MELLITUS
     Dosage: 2,G,DAILY ()
     Route: 048
     Dates: start: 20170321
  2. ATORVASTATIN [Suspect]
     Active Substance: ATORVASTATIN
     Indication: BLOOD CHOLESTEROL INCREASED
     Dosage: 40,MG,DAILY ()
     Route: 048
     Dates: start: 20170321, end: 201910
  3. GLUCOSAMIN [Concomitant]
     Active Substance: GLUCOSAMINE
     Indication: OSTEOARTHRITIS
     Dosage: 1500,MG,DAILY ()
     Route: 048
  4. LOSARSTAD COMP [Concomitant]
     Active Substance: HYDROCHLOROTHIAZIDE\LOSARTAN POTASSIUM
     Indication: HYPERTENSION
     Dosage: 1,DF,DAILY ()
     Route: 048

REACTIONS (3)
  - Weight decreased [Recovered/Resolved]
  - Immune-mediated myositis [Recovered/Resolved]
  - HLA marker study positive [Recovered/Resolved]

NARRATIVE: CASE EVENT DATE: 2019
